FAERS Safety Report 7712823-1 (Version None)
Quarter: 2011Q3

REPORT INFORMATION
  Report Type: 
  Country: None (occurrence: None)
  Receive Date: 20110826
  Receipt Date: 20110823
  Transmission Date: 20111222
  Serious: Yes (Death)
  Sender: FDA-Public Use
  Company Number: PHEH2011US02424

PATIENT
  Sex: Female

DRUGS (1)
  1. EXJADE [Suspect]
     Dosage: 125 MG, QD
     Route: 048

REACTIONS (1)
  - DEATH [None]
